FAERS Safety Report 23100802 (Version 1)
Quarter: 2023Q4

REPORT INFORMATION
  Report Type: Spontaneous
  Country: DE (occurrence: None)
  Receive Date: 20231024
  Receipt Date: 20231024
  Transmission Date: 20240109
  Serious: Yes (Other)
  Sender: FDA-Public Use
  Company Number: 2023A240690

PATIENT
  Age: 84 Year
  Sex: Female

DRUGS (6)
  1. ACALABRUTINIB [Suspect]
     Active Substance: ACALABRUTINIB
     Route: 048
     Dates: start: 202108
  2. CINNARIZINE\DIMENHYDRINATE [Concomitant]
     Active Substance: CINNARIZINE\DIMENHYDRINATE
     Dates: start: 202206
  3. ASA (ACETYLSALICYLIC ACID) 100 [Concomitant]
     Indication: Transient ischaemic attack
     Dosage: 1-0-0
  4. BISOPROLOL [Concomitant]
     Active Substance: BISOPROLOL\BISOPROLOL FUMARATE
     Dosage: 1-0-0
  5. PIPAMPERONE [Concomitant]
     Active Substance: PIPAMPERONE
     Dosage: JUICE IN THE EVENING, 1-0-1
  6. GINKGO [Concomitant]
     Active Substance: GINKGO
     Dosage: JUICE IN THE EVENING

REACTIONS (5)
  - Polyneuropathy [Unknown]
  - Dizziness postural [Unknown]
  - Ataxia [Unknown]
  - Hypoaesthesia [Unknown]
  - Vertigo [Unknown]
